FAERS Safety Report 23066721 (Version 1)
Quarter: 2023Q4

REPORT INFORMATION
  Report Type: Spontaneous
  Country: US (occurrence: US)
  Receive Date: 20231016
  Receipt Date: 20231016
  Transmission Date: 20240110
  Serious: Yes (Life-Threatening, Hospitalization, Other)
  Sender: FDA-Public Use
  Company Number: US-BAXTER-2023BAX032850

PATIENT
  Age: 65 Year
  Sex: Male

DRUGS (2)
  1. CEFTRIAXONE [Suspect]
     Active Substance: CEFTRIAXONE\CEFTRIAXONE SODIUM
     Indication: Beta haemolytic streptococcal infection
     Dosage: 6 WEEK COURSE
     Route: 065
  2. CEFTRIAXONE [Suspect]
     Active Substance: CEFTRIAXONE\CEFTRIAXONE SODIUM
     Indication: Device related infection

REACTIONS (9)
  - Acute kidney injury [Recovered/Resolved]
  - Cholestatic liver injury [Unknown]
  - Hyperbilirubinaemia [Recovered/Resolved]
  - Cholelithiasis [Unknown]
  - Haemolytic anaemia [Unknown]
  - Pyrexia [Unknown]
  - Hypotension [Unknown]
  - Jaundice [Unknown]
  - Haemolysis [Recovered/Resolved]
